FAERS Safety Report 8582387-1 (Version None)
Quarter: 2012Q3

REPORT INFORMATION
  Report Type: 
  Country: None (occurrence: None)
  Receive Date: 20120809
  Receipt Date: 20120803
  Transmission Date: 20120928
  Serious: Yes (Other)
  Sender: FDA-Public Use
  Company Number: US-GLAXOSMITHKLINE-A0978192A

PATIENT
  Age: 58 Year
  Sex: Female
  Weight: 80.5 kg

DRUGS (4)
  1. CONCURRENT MEDICATIONS [Concomitant]
  2. LOVAZA [Suspect]
     Indication: ARTHROPATHY
     Dosage: 2CAP TWICE PER DAY
     Route: 048
     Dates: start: 20110101, end: 20110101
  3. HYZAAR [Concomitant]
  4. LIPITOR [Concomitant]

REACTIONS (7)
  - ANOSMIA [None]
  - AGEUSIA [None]
  - HYPERTENSION [None]
  - OFF LABEL USE [None]
  - OSTEOARTHRITIS [None]
  - GASTROOESOPHAGEAL REFLUX DISEASE [None]
  - HYPERLIPIDAEMIA [None]
